FAERS Safety Report 4754083-X (Version None)
Quarter: 2005Q3

REPORT INFORMATION
  Report Type: 
  Country: None (occurrence: None)
  Receive Date: 20050826
  Receipt Date: 20050524
  Transmission Date: 20060218
  Serious: Yes (Hospitalization, Other)
  Sender: FDA-Public Use
  Company Number: US-MERCK-0505USA02917

PATIENT
  Age: 59 Year
  Sex: Female
  Weight: 114 kg

DRUGS (12)
  1. VIOXX [Suspect]
     Indication: ARTHRITIS
     Route: 048
     Dates: start: 20000911, end: 20040901
  2. HYDROCODONE BITARTRATE [Concomitant]
     Route: 048
  3. CLONAZEPAM [Concomitant]
     Route: 048
  4. CHLORHEXIDINE ACETATE [Concomitant]
     Route: 048
  5. ZITHROMAX [Concomitant]
     Route: 048
  6. DIPHENHYDRAMINE HYDROCHLORIDE [Concomitant]
     Route: 048
  7. BROVEX [Concomitant]
     Route: 048
  8. [THERAPY UNSPECIFIED] [Concomitant]
     Route: 048
  9. LISINOPRIL [Concomitant]
     Route: 048
  10. CARBAMAZEPINE [Concomitant]
     Route: 048
  11. SEROQUEL [Concomitant]
     Indication: NERVOUSNESS
     Route: 048
  12. APAP TAB [Concomitant]
     Indication: PAIN
     Route: 048

REACTIONS (8)
  - BLINDNESS [None]
  - BREAST DISORDER FEMALE [None]
  - BREAST OPERATION [None]
  - CARDIAC DISORDER [None]
  - CEREBROVASCULAR ACCIDENT [None]
  - EMOTIONAL DISTRESS [None]
  - NERVE INJURY [None]
  - OEDEMA PERIPHERAL [None]
